FAERS Safety Report 9168248 (Version 1)
Quarter: 2013Q1

REPORT INFORMATION
  Report Type: Spontaneous
  Country: CA (occurrence: CA)
  Receive Date: 20130318
  Receipt Date: 20130318
  Transmission Date: 20140127
  Serious: Yes (Other)
  Sender: FDA-Public Use
  Company Number: CA-AMGEN-CANSP2013015976

PATIENT
  Age: 73 Year
  Sex: Female
  Weight: 55 kg

DRUGS (2)
  1. PROLIA [Suspect]
     Indication: PRODUCT USED FOR UNKNOWN INDICATION
     Dosage: UNK
     Dates: start: 20121201
  2. PREDNISONE [Concomitant]

REACTIONS (7)
  - Skin haemorrhage [Unknown]
  - Skin fissures [Unknown]
  - Skin atrophy [Unknown]
  - Contusion [Unknown]
  - Muscular weakness [Unknown]
  - Mobility decreased [Unknown]
  - Spinal pain [Unknown]
